FAERS Safety Report 6984312-3 (Version None)
Quarter: 2010Q3

REPORT INFORMATION
  Report Type: 
  Country: None (occurrence: None)
  Receive Date: 20100915
  Receipt Date: 20100907
  Transmission Date: 20110219
  Serious: Yes (Disabling)
  Sender: FDA-Public Use
  Company Number: US-US-EMD SERONO, INC.-238319J08USA

PATIENT
  Sex: Female
  Weight: 77 kg

DRUGS (4)
  1. REBIF [Suspect]
     Indication: MULTIPLE SCLEROSIS
     Route: 058
     Dates: start: 20030303
  2. REMERON [Concomitant]
  3. GABAPENTIN [Concomitant]
     Indication: EYE PAIN
  4. MORPHINE [Concomitant]
     Indication: EYE PAIN

REACTIONS (2)
  - BLINDNESS [None]
  - INJECTION SITE REACTION [None]
